FAERS Safety Report 13557915 (Version 3)
Quarter: 2022Q1

REPORT INFORMATION
  Report Type: Report from Study
  Country: US (occurrence: US)
  Receive Date: 20170517
  Receipt Date: 20220224
  Transmission Date: 20220423
  Serious: No
  Sender: FDA-Public Use
  Company Number: US-ACADIA PHARMACEUTICALS INC.-ACA-2017-003203

PATIENT
  Age: 73 Year
  Sex: Male

DRUGS (29)
  1. NUPLAZID [Suspect]
     Active Substance: PIMAVANSERIN TARTRATE
     Indication: Parkinson^s disease
     Dosage: 34 MILLIGRAM, QD
     Route: 048
     Dates: start: 201912
  2. NUPLAZID [Suspect]
     Active Substance: PIMAVANSERIN TARTRATE
     Indication: Parkinson^s disease psychosis
     Dosage: 34 MG, QD
     Route: 048
     Dates: start: 201704
  3. NUPLAZID [Suspect]
     Active Substance: PIMAVANSERIN TARTRATE
     Indication: Hallucination
  4. NUPLAZID [Suspect]
     Active Substance: PIMAVANSERIN TARTRATE
     Indication: Delusion
  5. DUOPA [Concomitant]
     Active Substance: CARBIDOPA\LEVODOPA
  6. ATROVENT HFA [Concomitant]
     Active Substance: IPRATROPIUM BROMIDE
  7. MONTELUKAST SODIUM [Concomitant]
     Active Substance: MONTELUKAST SODIUM
  8. ASPIRIN [Concomitant]
     Active Substance: ASPIRIN
  9. DIETARY SUPPLEMENT [Concomitant]
     Active Substance: DIETARY SUPPLEMENT
  10. FISH OIL [Concomitant]
     Active Substance: FISH OIL
     Dosage: 100-150 MG
  11. COENZYME Q10 [Concomitant]
     Active Substance: DIETARY SUPPLEMENT\UBIDECARENONE
  12. MIRALAX [Concomitant]
     Active Substance: POLYETHYLENE GLYCOL 3350
     Dosage: 17G/DOSE POWDER
  13. RIVASTIGMINE [Concomitant]
     Active Substance: RIVASTIGMINE
  14. QUETIAPINE FUMARATE [Concomitant]
     Active Substance: QUETIAPINE FUMARATE
  15. FLORASTOR [LACTOBACILLUS ACIDOPHILUS] [Concomitant]
  16. VITAMIN C [Concomitant]
     Active Substance: ASCORBIC ACID
  17. AMOXICILLIN [Concomitant]
     Active Substance: AMOXICILLIN
  18. FLOMAX [Concomitant]
     Active Substance: TAMSULOSIN HYDROCHLORIDE
  19. VITAMINS [Concomitant]
     Active Substance: VITAMINS
  20. GABAPENTIN [Concomitant]
     Active Substance: GABAPENTIN
  21. SENNA S [Concomitant]
     Active Substance: DOCUSATE SODIUM\SENNA LEAF
  22. CLONAZEPAM [Concomitant]
     Active Substance: CLONAZEPAM
  23. OS CAL [CALCIUM CARBONATE] [Concomitant]
     Dosage: 500
  24. VITAMIN D3 [Concomitant]
     Active Substance: CHOLECALCIFEROL
  25. EXCEDRIN MIGRAINE [Concomitant]
     Active Substance: ACETAMINOPHEN\ASPIRIN\CAFFEINE
     Dosage: 250-250-65
  26. COENZYME Q10 [Concomitant]
     Active Substance: DIETARY SUPPLEMENT\UBIDECARENONE
  27. FINASTERIDE [Concomitant]
     Active Substance: FINASTERIDE
  28. ZYRTEC [Concomitant]
     Active Substance: CETIRIZINE HYDROCHLORIDE
  29. PHILLIPS COLON HEALTH [Concomitant]

REACTIONS (3)
  - Malaise [Unknown]
  - Product dose omission issue [Unknown]
  - Illness [Unknown]

NARRATIVE: CASE EVENT DATE: 20170401
